FAERS Safety Report 7437621-8 (Version None)
Quarter: 2011Q2

REPORT INFORMATION
  Report Type: 
  Country: None (occurrence: None)
  Receive Date: 20110426
  Receipt Date: 20110413
  Transmission Date: 20111010
  Serious: Yes (Death, Hospitalization)
  Sender: FDA-Public Use
  Company Number: DE-ROCHE-737071

PATIENT
  Sex: Female
  Weight: 76 kg

DRUGS (16)
  1. TOCILIZUMAB [Suspect]
     Dosage: 560 MG ALSO GIVEN ON 19 AUG 2010 AND 09 SEP 2010
     Route: 042
     Dates: start: 20100721, end: 20101010
  2. LEVEMIR [Concomitant]
  3. RAMIPRIL [Concomitant]
  4. APROVEL [Concomitant]
  5. METHOTREXAT [Concomitant]
  6. NOVORAPID [Concomitant]
  7. PREDNISOLONE [Suspect]
     Route: 048
  8. TORSEMIDE [Concomitant]
  9. ASS 100 [Concomitant]
  10. FOLIC ACID [Concomitant]
  11. PANTOPRAZOLE SODIUM [Concomitant]
  12. HYDROCHLOROTHIAZIDE [Concomitant]
  13. NON-STEROIDAL ANTI-INFLAMMATORIES [Concomitant]
     Dates: end: 20101011
  14. METOHEXAL [Concomitant]
  15. JODID 200 [Concomitant]
  16. CALCIUM/VITAMIN D3 [Concomitant]

REACTIONS (6)
  - MULTI-ORGAN FAILURE [None]
  - PNEUMOCYSTIS JIROVECI PNEUMONIA [None]
  - ACUTE RESPIRATORY DISTRESS SYNDROME [None]
  - RESPIRATORY FAILURE [None]
  - SEPSIS [None]
  - PULMONARY CONGESTION [None]
